FAERS Safety Report 4746009-X (Version None)
Quarter: 2005Q3

REPORT INFORMATION
  Report Type: 
  Country: None (occurrence: None)
  Receive Date: 20050816
  Receipt Date: 20050811
  Transmission Date: 20060218
  Serious: Yes (Death, Hospitalization)
  Sender: FDA-Public Use
  Company Number: PHRM2005FR02260

PATIENT
  Age: 68 Year
  Sex: Male
  Weight: 95 kg

DRUGS (4)
  1. NEORAL [Suspect]
     Indication: LIVER TRANSPLANT
     Dosage: 150 MG, QD
     Route: 048
     Dates: start: 19970615, end: 20030207
  2. CELLCEPT [Suspect]
     Indication: LIVER TRANSPLANT
     Dosage: 2 G, QD
     Route: 048
     Dates: start: 20020821, end: 20030131
  3. TADENAN [Concomitant]
     Indication: PROSTATIC ADENOMA
     Route: 048
  4. DEROXAT [Concomitant]
     Indication: DEPRESSION
     Dates: start: 20020615

REACTIONS (6)
  - ACUTE RESPIRATORY DISTRESS SYNDROME [None]
  - COUGH [None]
  - DEPRESSION [None]
  - DYSPNOEA EXERTIONAL [None]
  - PULMONARY FIBROSIS [None]
  - SHOCK [None]
